FAERS Safety Report 5072042-7 (Version None)
Quarter: 2006Q3

REPORT INFORMATION
  Report Type: 
  Country: None (occurrence: None)
  Receive Date: 20060807
  Receipt Date: 20060803
  Transmission Date: 20061208
  Serious: Yes (Hospitalization)
  Sender: FDA-Public Use
  Company Number: DE-AVENTIS-200612291DE

PATIENT
  Age: 44 Year
  Sex: Female
  Weight: 72.9 kg

DRUGS (1)
  1. DOCETAXEL [Suspect]
     Dosage: FREQUENCY: CYCLICALLY
     Route: 042
     Dates: start: 20060613, end: 20060613

REACTIONS (1)
  - FEBRILE NEUTROPENIA [None]
